FAERS Safety Report 6263409-X (Version None)
Quarter: 2009Q3

REPORT INFORMATION
  Report Type: 
  Country: None (occurrence: None)
  Receive Date: 20090710
  Receipt Date: 20081119
  Transmission Date: 20100115
  Serious: Yes (Other)
  Sender: FDA-Public Use
  Company Number: A0757645A

PATIENT
  Sex: Male

DRUGS (2)
  1. FLOVENT [Suspect]
     Indication: ASTHMA
     Route: 055
  2. ORAL STEROIDS [Concomitant]

REACTIONS (4)
  - AGITATION [None]
  - ASTHMA [None]
  - IRRITABILITY [None]
  - MOOD ALTERED [None]
